FAERS Safety Report 9522883 (Version 1)
Quarter: 2013Q1

REPORT INFORMATION
  Report Type: Spontaneous
  Country: US (occurrence: None)
  Receive Date: 20130305
  Receipt Date: 20130305
  Transmission Date: 20140127
  Serious: Yes (Disabling)
  Sender: FDA-Public Use
  Company Number: 163-21880-12070204

PATIENT
  Age: 89 Year
  Sex: Male
  Weight: 59.42 kg

DRUGS (3)
  1. REVLIMID [Suspect]
     Indication: PLASMA CELL MYELOMA
     Dosage: 10 MG, 1 IN 1 D, PO
     Route: 048
     Dates: start: 201105
  2. ENSURE (ENSURE) [Concomitant]
  3. MIRTAZAPINE (MIRTAZAPINE) [Concomitant]

REACTIONS (4)
  - Decreased appetite [None]
  - Weight decreased [None]
  - Rhinorrhoea [None]
  - Disease progression [None]
